FAERS Safety Report 19520421 (Version 1)
Quarter: 2021Q3

REPORT INFORMATION
  Report Type: Spontaneous
  Country: HR (occurrence: HR)
  Receive Date: 20210712
  Receipt Date: 20210712
  Transmission Date: 20211014
  Serious: Yes (Death, Hospitalization, Other)
  Sender: FDA-Public Use
  Company Number: HR-ASTELLAS-2021US025162

PATIENT
  Age: 60 Year
  Sex: Male

DRUGS (1)
  1. PROGRAF [Suspect]
     Active Substance: TACROLIMUS
     Indication: LIVER TRANSPLANT
     Dosage: UNK, UNKNOWN FREQ.
     Route: 065

REACTIONS (5)
  - Transplant rejection [Recovering/Resolving]
  - Fall [Unknown]
  - Death [Fatal]
  - Forearm fracture [Unknown]
  - Hepatitis alcoholic [Unknown]

NARRATIVE: CASE EVENT DATE: 201810
